FAERS Safety Report 15789858 (Version 7)
Quarter: 2020Q3

REPORT INFORMATION
  Report Type: Spontaneous
  Country: US (occurrence: US)
  Receive Date: 20190104
  Receipt Date: 20200727
  Transmission Date: 20201102
  Serious: Yes (Hospitalization, Other)
  Sender: FDA-Public Use
  Company Number: US-PFIZER INC-2019003821

PATIENT
  Age: 52 Year
  Sex: Female
  Weight: 72.12 kg

DRUGS (11)
  1. TOPAMAX [Concomitant]
     Active Substance: TOPIRAMATE
     Dosage: 200 MG, 2X/DAY (ONCE IN THE MORNING AND ONCE AT NIGHT)
     Route: 048
  2. LYRICA [Concomitant]
     Active Substance: PREGABALIN
     Dosage: 100 MG
  3. LYRICA [Concomitant]
     Active Substance: PREGABALIN
     Dosage: 500 MG, DAILY (TWICE IN THE MORNING AND THREE TIMES AT NIGHT)
     Route: 048
  4. RELPAX [Suspect]
     Active Substance: ELETRIPTAN HYDROBROMIDE
     Dosage: 40 MG (3 TIMES A WEEK)
     Route: 048
  5. FLUDROCORTISON [Concomitant]
     Active Substance: FLUDROCORTISONE
     Dosage: 0.1 MG
  6. TOPAMAX [Concomitant]
     Active Substance: TOPIRAMATE
     Dosage: 100 MG, 2X/DAY (ONCE IN THE MORNING AND ONCE AT NIGHT)
     Route: 048
  7. FYCOMPA [Concomitant]
     Active Substance: PERAMPANEL
     Dosage: 4 MG
     Dates: start: 2018
  8. RELPAX [Suspect]
     Active Substance: ELETRIPTAN HYDROBROMIDE
     Indication: MIGRAINE
     Dosage: 140 MG, 1 TABLET AS NEEDED (IF STILL PERSISTING IN 3 HOURS TAKE ANOTHER TABLET?NO MORE THAN 3X/WEEK)
  9. RELPAX [Suspect]
     Active Substance: ELETRIPTAN HYDROBROMIDE
     Dosage: 40 MG, 2X/DAY (1 AT ONSET AND THEN IN 2 HRS IF NOT GONE? NO MORE THAN 2/DAY AND 3 TIMES A WEEK)
  10. RELPAX [Suspect]
     Active Substance: ELETRIPTAN HYDROBROMIDE
     Indication: HEADACHE
     Dosage: 40 MG, 1 TABLET AT ONSET
  11. TOPAMAX [Concomitant]
     Active Substance: TOPIRAMATE
     Dosage: 600 MG, DAILY
     Dates: start: 2007

REACTIONS (11)
  - Drug ineffective [Unknown]
  - Headache [Not Recovered/Not Resolved]
  - Product prescribing error [Unknown]
  - Back pain [Unknown]
  - Lower limb fracture [Recovered/Resolved]
  - Osteoporosis [Unknown]
  - Stress [Unknown]
  - Loss of consciousness [Not Recovered/Not Resolved]
  - Bone disorder [Unknown]
  - Fall [Not Recovered/Not Resolved]
  - Arthralgia [Not Recovered/Not Resolved]

NARRATIVE: CASE EVENT DATE: 201606
